FAERS Safety Report 20318499 (Version 1)
Quarter: 2022Q1

REPORT INFORMATION
  Report Type: Spontaneous
  Country: US (occurrence: None)
  Receive Date: 20220110
  Receipt Date: 20220110
  Transmission Date: 20220423
  Serious: No
  Sender: FDA-Public Use
  Company Number: None

PATIENT
  Sex: Male

DRUGS (1)
  1. STELARA [Suspect]
     Active Substance: USTEKINUMAB
     Indication: Colitis
     Dosage: 90MG EVERY 8 WEEK UNDER THE SKIN?
     Route: 058
     Dates: start: 202112

REACTIONS (4)
  - Drug ineffective [None]
  - Weight decreased [None]
  - Abdominal pain [None]
  - Frequent bowel movements [None]
